FAERS Safety Report 21369291 (Version 1)
Quarter: 2022Q3

REPORT INFORMATION
  Report Type: Spontaneous
  Country: US (occurrence: None)
  Receive Date: 20220922
  Receipt Date: 20220922
  Transmission Date: 20221026
  Serious: Yes (Other)
  Sender: FDA-Public Use
  Company Number: None

PATIENT
  Age: 31 Year
  Sex: Female
  Weight: 96.7 kg

DRUGS (10)
  1. BEBTELOVIMAB [Suspect]
     Active Substance: BEBTELOVIMAB
     Indication: COVID-19
     Dosage: OTHER FREQUENCY : X1;?
     Route: 042
     Dates: start: 20220718, end: 20220718
  2. SPIRIVA [Concomitant]
     Active Substance: TIOTROPIUM BROMIDE MONOHYDRATE
  3. DULERA [Concomitant]
     Active Substance: FORMOTEROL FUMARATE DIHYDRATE\MOMETASONE FUROATE
  4. MORPHINE [Concomitant]
     Active Substance: MORPHINE
  5. LORAZEPAM [Concomitant]
     Active Substance: LORAZEPAM
  6. IBRANCE [Concomitant]
     Active Substance: PALBOCICLIB
  7. DULOXETINE [Concomitant]
     Active Substance: DULOXETINE
  8. TIZANIDINE [Concomitant]
     Active Substance: TIZANIDINE
  9. EPIPEN [Concomitant]
     Active Substance: EPINEPHRINE
  10. RIZATRIPTAN [Suspect]
     Active Substance: RIZATRIPTAN

REACTIONS (3)
  - Infusion related reaction [None]
  - Wheezing [None]
  - Pruritus [None]

NARRATIVE: CASE EVENT DATE: 20220719
